FAERS Safety Report 6558566-1 (Version None)
Quarter: 2010Q1

REPORT INFORMATION
  Report Type: 
  Country: None (occurrence: None)
  Receive Date: 20100129
  Receipt Date: 20090504
  Transmission Date: 20100710
  Serious: No
  Sender: FDA-Public Use
  Company Number: A0782355A

PATIENT
  Age: 25 Year
  Sex: Female

DRUGS (3)
  1. MEPRON [Suspect]
     Dosage: 5ML TWICE PER DAY
     Route: 048
     Dates: start: 20090501
  2. ZITHROMAX [Concomitant]
  3. VITAMIN TAB [Concomitant]

REACTIONS (1)
  - DRUG EXPOSURE DURING PREGNANCY [None]
